FAERS Safety Report 21192266 (Version 1)
Quarter: 2022Q3

REPORT INFORMATION
  Report Type: Spontaneous
  Country: US (occurrence: US)
  Receive Date: 20220809
  Receipt Date: 20220809
  Transmission Date: 20221027
  Serious: No
  Sender: FDA-Public Use
  Company Number: US-009507513-2207USA005387

PATIENT
  Age: 12 Year
  Sex: Male

DRUGS (3)
  1. KEYTRUDA [Suspect]
     Active Substance: PEMBROLIZUMAB
     Indication: Clear cell sarcoma of soft tissue
  2. DOXORUBICIN [Concomitant]
     Active Substance: DOXORUBICIN
     Indication: Clear cell sarcoma of soft tissue
  3. IFOSFAMIDE [Concomitant]
     Active Substance: IFOSFAMIDE
     Indication: Clear cell sarcoma of soft tissue

REACTIONS (1)
  - Product use in unapproved indication [Unknown]
